FAERS Safety Report 20566578 (Version 1)
Quarter: 2022Q1

REPORT INFORMATION
  Report Type: Spontaneous
  Country: FR (occurrence: FR)
  Receive Date: 20220308
  Receipt Date: 20220308
  Transmission Date: 20220423
  Serious: Yes (Hospitalization)
  Sender: FDA-Public Use
  Company Number: FR-Merck Healthcare KGaA-9294099

PATIENT
  Age: 71 Year
  Sex: Female
  Weight: 45 kg

DRUGS (11)
  1. LEUCOVORIN CALCIUM [Suspect]
     Active Substance: LEUCOVORIN CALCIUM
     Indication: Biliary neoplasm
     Dosage: UNK
     Dates: start: 20190913
  2. FLUOROURACIL [Suspect]
     Active Substance: FLUOROURACIL
     Indication: Biliary neoplasm
     Dosage: UNK
     Dates: start: 20190913
  3. IRINOTECAN [Suspect]
     Active Substance: IRINOTECAN
     Indication: Biliary neoplasm
     Dosage: UNK
     Dates: start: 20190913
  4. REGORAFENIB [Suspect]
     Active Substance: REGORAFENIB
     Indication: Biliary neoplasm
     Dosage: 80 MILLIGRAM
     Dates: start: 20190503
  5. REGORAFENIB [Suspect]
     Active Substance: REGORAFENIB
     Dosage: 80 MILLIGRAM
     Dates: start: 20190823, end: 20190823
  6. SOTALOL [Concomitant]
     Active Substance: SOTALOL
     Indication: Hypertension
     Dosage: UNK
     Route: 048
     Dates: start: 20190616
  7. INNOHEP [Concomitant]
     Active Substance: TINZAPARIN SODIUM
     Indication: Arrhythmia prophylaxis
     Dosage: UNK
     Route: 058
     Dates: start: 20190520
  8. AVELUMAB [Concomitant]
     Active Substance: AVELUMAB
     Indication: Bile duct cancer
     Dosage: UNK
     Dates: start: 20190613
  9. AVELUMAB [Concomitant]
     Active Substance: AVELUMAB
     Dosage: UNK
     Dates: start: 20190823, end: 20190823
  10. LERCANIDIPINE [Concomitant]
     Active Substance: LERCANIDIPINE
     Indication: Hypertension
     Dosage: UNK
     Route: 048
     Dates: start: 20190712
  11. FENTANYL [Concomitant]
     Active Substance: FENTANYL
     Indication: Abdominal pain
     Dosage: UNK
     Route: 048
     Dates: start: 20190702

REACTIONS (1)
  - Abdominal pain [Recovered/Resolved]

NARRATIVE: CASE EVENT DATE: 20190916
